FAERS Safety Report 19918007 (Version 2)
Quarter: 2021Q4

REPORT INFORMATION
  Report Type: Other
  Country: US (occurrence: US)
  Receive Date: 20211005
  Receipt Date: 20211007
  Transmission Date: 20220303
  Serious: Yes (Other)
  Sender: FDA-Public Use
  Company Number: US-ROCHE-2925713

PATIENT
  Sex: Female

DRUGS (1)
  1. OCREVUS [Suspect]
     Active Substance: OCRELIZUMAB
     Indication: Relapsing multiple sclerosis
     Dosage: UNKNOWN?600 MG Q6 MONTHS, DATE OF TREATMENT : 2021-08-12, 2021-02-12, 2020-08-12, 7/24/2020.
     Route: 042

REACTIONS (7)
  - Pneumonia [Unknown]
  - Multiple sclerosis relapse [Unknown]
  - Pruritus [Unknown]
  - Acne [Unknown]
  - Haemoglobin decreased [Unknown]
  - Nasopharyngitis [Unknown]
  - Mental disorder [Unknown]
